FAERS Safety Report 5903234-X (Version None)
Quarter: 2008Q3

REPORT INFORMATION
  Report Type: 
  Country: None (occurrence: None)
  Receive Date: 20080930
  Receipt Date: 20080919
  Transmission Date: 20090109
  Serious: Yes (Death)
  Sender: FDA-Public Use
  Company Number: IR-JNJFOC-20080905527

PATIENT

DRUGS (1)
  1. REMICADE [Suspect]
     Indication: PSORIASIS
     Route: 042

REACTIONS (3)
  - CARDIAC FAILURE CONGESTIVE [None]
  - HEPATOMEGALY [None]
  - OEDEMA PERIPHERAL [None]
